FAERS Safety Report 8923870 (Version 2)
Quarter: 2013Q3

REPORT INFORMATION
  Report Type: Spontaneous
  Country: US (occurrence: US)
  Receive Date: 20121126
  Receipt Date: 20130717
  Transmission Date: 20140515
  Serious: Yes (Hospitalization, Disabling, Other)
  Sender: FDA-Public Use
  Company Number: US-009507513-1211USA008151

PATIENT
  Sex: Female

DRUGS (2)
  1. FOSAMAX [Suspect]
     Indication: OSTEOPOROSIS
     Dosage: UNK
     Route: 048
  2. FOSAMAX [Suspect]
     Dosage: UNK
     Route: 048
     Dates: start: 2008, end: 2010

REACTIONS (17)
  - Hip fracture [Not Recovered/Not Resolved]
  - Open reduction of fracture [Unknown]
  - Surgery [Unknown]
  - Osteoporosis [Not Recovered/Not Resolved]
  - Multiple fractures [Not Recovered/Not Resolved]
  - Femur fracture [Not Recovered/Not Resolved]
  - Low turnover osteopathy [Not Recovered/Not Resolved]
  - Pneumonia [Unknown]
  - Adverse event [Unknown]
  - Intervertebral disc operation [Unknown]
  - Spinal laminectomy [Unknown]
  - Dehydration [Unknown]
  - Adverse event [Unknown]
  - Paraplegia [Unknown]
  - Spinal column stenosis [Unknown]
  - Intervertebral disc protrusion [Unknown]
  - Spondylitis [Unknown]
